FAERS Safety Report 12765483 (Version 1)
Quarter: 2016Q3

REPORT INFORMATION
  Report Type: Report from Study
  Country: US (occurrence: US)
  Receive Date: 20160921
  Receipt Date: 20160921
  Transmission Date: 20161109
  Serious: Yes (Other)
  Sender: FDA-Public Use
  Company Number: US-AMGEN-USASL2016125132

PATIENT
  Age: 87 Year
  Sex: Female
  Weight: 64.85 kg

DRUGS (17)
  1. ONGLYZA [Concomitant]
     Active Substance: SAXAGLIPTIN HYDROCHLORIDE
     Indication: DIABETES MELLITUS
     Dosage: 5 MG, QD (ONCE DAILY 1-YR SUPPLY)
  2. CALTRATE 600+D [Concomitant]
     Dosage: UNK UNK, QD (600-400 MG UNIT TABS ONCE DAILY)
  3. LOSARTAN POTASSIUM. [Concomitant]
     Active Substance: LOSARTAN POTASSIUM
     Dosage: 100 MG, QID (TAKE ONE TABLET BY MOUTH ONCE DAILY AT BEDTIME)
     Route: 048
  4. LEVOTHYROXINE SODIUM. [Concomitant]
     Active Substance: LEVOTHYROXINE SODIUM
     Dosage: 100 MUG, UNK (1 TABLET BY MOUTH QAM MONDAY -THURSDAY- THEN TAKE 0.5 TABLET)
     Route: 048
  5. ALLOPURINOL. [Concomitant]
     Active Substance: ALLOPURINOL
     Indication: GOUT
     Dosage: 100 MG, QD (TAKE 1 TABLET BY MOUTH ONCE DAILY)
     Route: 048
  6. AMLODIPINE BESYLATE. [Concomitant]
     Active Substance: AMLODIPINE BESYLATE
     Dosage: 5 MG, BID (TWICE A DAY)
  7. ATENOLOL. [Concomitant]
     Active Substance: ATENOLOL
     Dosage: 50 MG, QD (ONCE DAILY)
  8. CENTRUM SILVER [Concomitant]
     Active Substance: MINERALS\VITAMINS
     Dosage: UNK UNK, QD (ONCE DAILY)
  9. FISH OIL [Concomitant]
     Active Substance: FISH OIL
     Dosage: 1000 MG, QD (CAPSUL 3 ONCE A DAY)
  10. PRILOSEC [Concomitant]
     Active Substance: OMEPRAZOLE MAGNESIUM
     Dosage: 20 MG, QD (20 MG TBEC, 1 ONCE DAILY)
  11. PROAIR HFA [Concomitant]
     Active Substance: ALBUTEROL SULFATE
     Dosage: 108 MUG, Q4H (108 (90 BASE) MCG/ACT AERS, 2 PUFFS Q4H PRN)
  12. CLOBETASOL PROPIONATE. [Concomitant]
     Active Substance: CLOBETASOL PROPIONATE
     Dosage: 0.05 %, UNK (APPLY THIN LAYER TWICE A DAY X2 WEEKS, THEN DAILY X2 WEEKS, THEN THREE TIMES PER WEEKS)
  13. PROCRIT [Suspect]
     Active Substance: ERYTHROPOIETIN
     Indication: PRODUCT USED FOR UNKNOWN INDICATION
     Dosage: 40000 UNIT, QWK (40000 UNIT/ML SOLN, ONCE A WEEK)
     Route: 058
     Dates: start: 20140924
  14. IRON [Concomitant]
     Active Substance: IRON
     Dosage: 325 MG, QD (325 (65 FE) MG TABS, 4 TABS QD)
  15. TRIAMCINOLONE ACETONIDE. [Concomitant]
     Active Substance: TRIAMCINOLONE ACETONIDE
     Indication: PSORIASIS
     Dosage: 0.1 %, QD (APPLY TO AFFECTED AREA)
  16. CYTOMEL [Concomitant]
     Active Substance: LIOTHYRONINE SODIUM
     Dosage: 5 MUG, QD (5 MCG TABLET TAKE ONE TABLET BY MOUTH ONCE DAILY, MID-AFTERNOON USE)
     Route: 048
  17. NYSTATIN W/TRIAMCINOLONE [Concomitant]
     Dosage: UNK, BID (100000-0.1 UNIT/GM-% CREA, USE AS DIRECTED APPLY TO AFFECTED AREA BID X 10-14 DAYS THEN)

REACTIONS (20)
  - Dermatophytosis [Unknown]
  - Contusion [Unknown]
  - Lichen planus [Unknown]
  - Bursitis [Unknown]
  - Back pain [Unknown]
  - Fall [Unknown]
  - Large intestine polyp [Unknown]
  - Eczema [Unknown]
  - Hypertriglyceridaemia [Unknown]
  - Hiatus hernia [Unknown]
  - Palpitations [Unknown]
  - Body tinea [Unknown]
  - Secondary hypothyroidism [Unknown]
  - Haemoglobin decreased [Unknown]
  - Essential hypertension [Unknown]
  - Diverticulum intestinal [Unknown]
  - Gastrooesophageal reflux disease [Unknown]
  - Oedema peripheral [Unknown]
  - Rhinitis allergic [Unknown]
  - Injury [Unknown]

NARRATIVE: CASE EVENT DATE: 20160304
